FAERS Safety Report 7192806-3 (Version None)
Quarter: 2010Q4

REPORT INFORMATION
  Report Type: 
  Country: None (occurrence: None)
  Receive Date: 20101223
  Receipt Date: 20100827
  Transmission Date: 20110411
  Serious: No
  Sender: FDA-Public Use
  Company Number: US-AMGEN-TCS434376

PATIENT

DRUGS (1)
  1. ENBREL [Suspect]
     Indication: ANKYLOSING SPONDYLITIS
     Dosage: 50 MG, QWK
     Route: 058
     Dates: start: 20091117

REACTIONS (6)
  - ARTHRALGIA [None]
  - COUGH [None]
  - FEELING ABNORMAL [None]
  - INJECTION SITE PAIN [None]
  - NECK PAIN [None]
  - SINUS HEADACHE [None]
